FAERS Safety Report 9947293 (Version 1)
Quarter: 2014Q1

REPORT INFORMATION
  Report Type: Spontaneous
  Country: US (occurrence: US)
  Receive Date: 20140303
  Receipt Date: 20140303
  Transmission Date: 20141002
  Serious: No
  Sender: FDA-Public Use
  Company Number: US-ABBVIE-13P-163-1058565-00

PATIENT
  Sex: Female
  Weight: 86.26 kg

DRUGS (2)
  1. HUMIRA [Suspect]
     Indication: RHEUMATOID ARTHRITIS
     Dates: start: 2003, end: 201212
  2. HUMIRA [Suspect]
     Dates: start: 201212, end: 201302

REACTIONS (2)
  - Red blood cell sedimentation rate increased [Unknown]
  - Drug ineffective [Not Recovered/Not Resolved]
